FAERS Safety Report 4693120-8 (Version None)
Quarter: 2005Q2

REPORT INFORMATION
  Report Type: 
  Country: None (occurrence: None)
  Receive Date: 20050617
  Receipt Date: 20050607
  Transmission Date: 20051028
  Serious: Yes (Other)
  Sender: FDA-Public Use
  Company Number: US-ABBOTT-05P-163-0302604-00

PATIENT
  Age: 60 Year
  Sex: Male
  Weight: 137 kg

DRUGS (14)
  1. SEVOFLURANE [Suspect]
     Indication: ANAESTHESIA
     Dosage: IN THE RANGE OF 0.45%-0.8% END-TIDAL
  2. OXYCODONE HCL [Concomitant]
     Indication: BACK PAIN
     Dosage: NOT REPORTED
  3. GABAPENTIN [Concomitant]
     Indication: BACK PAIN
     Dosage: NOT REPORTED
  4. CYCLOBENZAPRINE HCL [Concomitant]
     Indication: BACK PAIN
     Dosage: NOT REPORTED
  5. BETA BLOCKADE [Concomitant]
     Indication: DRUG USE FOR UNKNOWN INDICATION
     Dosage: NOT REPORTED
  6. 1.5% LIDOCAINE WITH 1:200,000 EPINEPHRINE [Concomitant]
     Indication: EPIDURAL ANAESTHESIA
     Dosage: 3 ML TEST DOSE
  7. LIDOCAINE 2% [Concomitant]
     Indication: EPIDURAL ANAESTHESIA
     Route: 008
  8. LIDOCAINE 2% [Concomitant]
  9. LIDOCAINE [Concomitant]
     Indication: EPIDURAL ANAESTHESIA
     Route: 008
  10. LIDOCAINE [Concomitant]
     Route: 008
  11. THIOPENTAL SODIUM [Concomitant]
     Indication: INDUCTION OF ANAESTHESIA
     Dosage: NOT REPORTED
  12. SUCCINYLCHOLINE [Concomitant]
     Indication: INDUCTION OF ANAESTHESIA
     Dosage: NOT REPORTED
  13. SUCCINYLCHOLINE [Concomitant]
     Indication: INTUBATION
     Dosage: NOT REPORTED
  14. NIMBEX [Concomitant]
     Indication: HYPOTONIA
     Dosage: NOT REPORTED

REACTIONS (2)
  - HYPOTENSION [None]
  - UNWANTED AWARENESS DURING ANAESTHESIA [None]
